FAERS Safety Report 5382684-7 (Version None)
Quarter: 2007Q3

REPORT INFORMATION
  Report Type: 
  Country: None (occurrence: None)
  Receive Date: 20070703
  Receipt Date: 20070703
  Transmission Date: 20080115
  Serious: Yes (Other)
  Sender: FDA-Public Use
  Company Number: None

PATIENT
  Age: 6 Year
  Sex: Male
  Weight: 21.5 kg

DRUGS (2)
  1. VALPROIC ACID 250 MG/5CC GENERIC [Suspect]
     Indication: EPILEPSY
     Dosage: 2CC OR 100 MG TID PO
     Route: 048
     Dates: start: 20070516, end: 20070701
  2. VALPROIC ACID 250 MG/5CC GENERIC [Suspect]
     Indication: GRAND MAL CONVULSION
     Dosage: 2CC OR 100 MG TID PO
     Route: 048
     Dates: start: 20070516, end: 20070701

REACTIONS (1)
  - ABNORMAL BEHAVIOUR [None]
